FAERS Safety Report 14200515 (Version 1)
Quarter: 2017Q4

REPORT INFORMATION
  Report Type: Spontaneous
  Country: US (occurrence: US)
  Receive Date: 20171117
  Receipt Date: 20171117
  Transmission Date: 20180321
  Serious: No
  Sender: FDA-Public Use
  Company Number: US-AMNEAL PHARMACEUTICALS-2017AMN00720

PATIENT
  Sex: Female

DRUGS (2)
  1. ZENCHENT FE [Suspect]
     Active Substance: ETHINYL ESTRADIOL\NORETHINDRONE
     Indication: PITUITARY TUMOUR
  2. ZENCHENT FE [Suspect]
     Active Substance: ETHINYL ESTRADIOL\NORETHINDRONE
     Indication: CONTRACEPTION

REACTIONS (3)
  - Abdominal discomfort [Unknown]
  - Gastrointestinal disorder [Unknown]
  - Arthralgia [Unknown]
